FAERS Safety Report 9041525 (Version 1)
Quarter: 2013Q1

REPORT INFORMATION
  Report Type: Report from Study
  Country: US (occurrence: US)
  Receive Date: 20130129
  Receipt Date: 20130129
  Transmission Date: 20140127
  Serious: No
  Sender: FDA-Public Use
  Company Number: US-ABBOTT-12P-163-0904161-00

PATIENT
  Age: 50 Year
  Sex: Male

DRUGS (18)
  1. HUMIRA 40 MG/ 0.8 ML PRE-FILLED SYRINGE [Suspect]
     Indication: PSORIASIS
  2. TRILIPIX [Concomitant]
     Indication: PRODUCT USED FOR UNKNOWN INDICATION
  3. LABETALOL [Concomitant]
     Indication: PRODUCT USED FOR UNKNOWN INDICATION
  4. KLONOPIN [Concomitant]
     Indication: PRODUCT USED FOR UNKNOWN INDICATION
  5. ROZEREM [Concomitant]
     Indication: PRODUCT USED FOR UNKNOWN INDICATION
     Dosage: 8MG QHS
  6. VITAMIN D [Concomitant]
     Indication: PRODUCT USED FOR UNKNOWN INDICATION
  7. MULTIVITAMIN [Concomitant]
     Indication: PRODUCT USED FOR UNKNOWN INDICATION
  8. VITAMIN B12 [Concomitant]
     Indication: PRODUCT USED FOR UNKNOWN INDICATION
  9. VITAMIN B6 [Concomitant]
     Indication: PRODUCT USED FOR UNKNOWN INDICATION
  10. FOLIC ACID [Concomitant]
     Indication: PRODUCT USED FOR UNKNOWN INDICATION
  11. EPIDURAL STEROID SHOTS [Concomitant]
     Indication: PRODUCT USED FOR UNKNOWN INDICATION
  12. LIPITOR [Concomitant]
     Indication: PRODUCT USED FOR UNKNOWN INDICATION
  13. LIPITOR [Concomitant]
  14. NORVASC [Concomitant]
     Indication: PRODUCT USED FOR UNKNOWN INDICATION
  15. NORVASC [Concomitant]
  16. METFORMIN [Concomitant]
     Indication: PRODUCT USED FOR UNKNOWN INDICATION
  17. LANTUS [Concomitant]
     Indication: PRODUCT USED FOR UNKNOWN INDICATION
  18. NOVOLOG [Concomitant]

REACTIONS (9)
  - Diabetes mellitus [Not Recovered/Not Resolved]
  - Blood glucose fluctuation [None]
  - Vertigo [None]
  - Hypotension [None]
  - Nasopharyngitis [None]
  - Dermatitis allergic [None]
  - Rash pruritic [Not Recovered/Not Resolved]
  - Exfoliative rash [None]
  - Skin exfoliation [None]
